FAERS Safety Report 6839859-7 (Version None)
Quarter: 2010Q3

REPORT INFORMATION
  Report Type: 
  Country: None (occurrence: None)
  Receive Date: 20100714
  Receipt Date: 20100707
  Transmission Date: 20110219
  Serious: Yes (Other)
  Sender: FDA-Public Use
  Company Number: US-PFIZER INC-2010084992

PATIENT
  Sex: Female
  Weight: 60 kg

DRUGS (7)
  1. CELEBREX [Suspect]
     Indication: PAIN
     Dosage: 200 MG, DAILY
  2. CELEBREX [Suspect]
     Dosage: 200 MG, AS NEEDED
     Route: 048
  3. CENESTIN [Concomitant]
     Indication: OSTEOPOROSIS PROPHYLAXIS
     Dosage: DAILY
     Route: 048
  4. PROMETRIUM [Concomitant]
     Indication: OSTEOPOROSIS PROPHYLAXIS
     Dosage: DAILY
     Route: 048
  5. VITAMIN B COMPLEX CAP [Concomitant]
     Dosage: DAILY
  6. ASCORBIC ACID/QUERCETIN [Concomitant]
     Dosage: DAILY
  7. FISH OIL [Concomitant]
     Dosage: DAILY

REACTIONS (5)
  - ABDOMINAL PAIN UPPER [None]
  - DISORIENTATION [None]
  - DISTURBANCE IN ATTENTION [None]
  - FATIGUE [None]
  - FOOD INTOLERANCE [None]
